FAERS Safety Report 9520226 (Version 2)
Quarter: 2014Q1

REPORT INFORMATION
  Report Type: Spontaneous
  Country: US (occurrence: None)
  Receive Date: 20130305
  Receipt Date: 20140306
  Transmission Date: 20141002
  Serious: Yes (Hospitalization, Other)
  Sender: FDA-Public Use
  Company Number: 163-21880-12022949

PATIENT
  Age: 66 Year
  Sex: Female
  Weight: 71.2 kg

DRUGS (15)
  1. REVLIMID (LENALIDOMIDE) (25 MILLIGRAM, CAPSULES) [Suspect]
     Indication: PLASMA CELL MYELOMA
     Dosage: 25 MG, 21 IN 28 D, PO
     Route: 048
     Dates: start: 20111011
  2. ZOMETA (ZOLEDRONIC ACID) [Concomitant]
  3. VELCADE (BORTEZOMIB) [Concomitant]
  4. COUMADIN (WARFARIN SODIUM) [Concomitant]
  5. ACYCLOVIR (ACICLOVIR) (TABLETS) [Concomitant]
  6. CELEBREX (CELECOXIB) (CAPSULES) [Concomitant]
  7. DEXAMETHASONE (DEXAMETHASONE) (TABLETS) [Concomitant]
  8. ENALAPRIL MALEATE (ENALAPRIL MALEATE) (TABLETS) [Concomitant]
  9. LEVEMIR (INSULIN DETEMIR) [Concomitant]
  10. LORAZEPAM (LORAZEPAM) (TABLETS) [Concomitant]
  11. NOVOLOG (INSULIN ASPART) [Concomitant]
  12. PANTOPRAZOLE (PANTOPRAZOLE) (TABLETS) [Concomitant]
  13. PROTONIX (TABLETS) [Concomitant]
  14. LASIX (FUROSEMIDE) (TABLETS) [Concomitant]
  15. ASPIRIN (ACETYLSALICYLIC ACID) (TABLETS) [Concomitant]

REACTIONS (6)
  - Deep vein thrombosis [None]
  - Pulmonary thrombosis [None]
  - Rash [None]
  - Drug intolerance [None]
  - Upper respiratory tract infection [None]
  - Venous thrombosis [None]
